FAERS Safety Report 7145703-3 (Version None)
Quarter: 2010Q4

REPORT INFORMATION
  Report Type: 
  Country: None (occurrence: None)
  Receive Date: 20101208
  Receipt Date: 20100413
  Transmission Date: 20110411
  Serious: No
  Sender: FDA-Public Use
  Company Number: US-ABBOTT-10P-163-0639228-00

PATIENT
  Sex: Female

DRUGS (1)
  1. ERYTHROMYCIN BASE [Suspect]
     Indication: PRODUCT USED FOR UNKNOWN INDICATION
     Dosage: UNKNOWN
     Route: 065

REACTIONS (1)
  - URTICARIA [None]
